FAERS Safety Report 24234418 (Version 7)
Quarter: 2025Q1

REPORT INFORMATION
  Report Type: Spontaneous
  Country: CO (occurrence: CO)
  Receive Date: 20240821
  Receipt Date: 20250317
  Transmission Date: 20250409
  Serious: No
  Sender: PFIZER
  Company Number: CO-PFIZER INC-PV202400107808

PATIENT
  Age: 12 Year
  Sex: Male
  Weight: 38.8 kg

DRUGS (5)
  1. GENOTROPIN [Suspect]
     Active Substance: SOMATROPIN
     Indication: Growth hormone deficiency
     Dosage: 1.6 MG, DAILY
     Route: 058
     Dates: start: 20240805
  2. GENOTROPIN [Suspect]
     Active Substance: SOMATROPIN
     Indication: Thyroid disorder
  3. ARGININE [Concomitant]
     Active Substance: ARGININE
     Indication: Body height decreased
     Dosage: 500 MG, DAILY
  4. VITAMIN D NOS [Concomitant]
     Active Substance: CHOLECALCIFEROL\ERGOCALCIFEROL
     Indication: Body height decreased
     Dosage: 2000 IU, DAILY
  5. ZINC [Concomitant]
     Active Substance: ZINC
     Indication: Body height decreased
     Dosage: 50 MG, DAILY

REACTIONS (4)
  - Device leakage [Unknown]
  - Wrong technique in device usage process [Unknown]
  - Device breakage [Unknown]
  - Device dispensing error [Unknown]

NARRATIVE: CASE EVENT DATE: 20240801
